FAERS Safety Report 5853685-7 (Version None)
Quarter: 2008Q3

REPORT INFORMATION
  Report Type: 
  Country: None (occurrence: None)
  Receive Date: 20080822
  Receipt Date: 20080813
  Transmission Date: 20090109
  Serious: Yes (Other)
  Sender: FDA-Public Use
  Company Number: PHHY2008DE18502

PATIENT
  Sex: Male

DRUGS (1)
  1. RITALIN LA [Suspect]
     Dosage: 1-0-0
     Route: 048
     Dates: start: 20080603, end: 20080611

REACTIONS (2)
  - MUSCLE TWITCHING [None]
  - TIC [None]
